FAERS Safety Report 4847510-0 (Version None)
Quarter: 2005Q4

REPORT INFORMATION
  Report Type: 
  Country: None (occurrence: None)
  Receive Date: 20051207
  Receipt Date: 20040820
  Transmission Date: 20060501
  Serious: Yes (Death, Hospitalization)
  Sender: FDA-Public Use
  Company Number: FRWYE992920AUG04

PATIENT
  Age: 38 Year
  Sex: Male

DRUGS (4)
  1. ENBREL [Suspect]
     Indication: POLYARTHRITIS
     Route: 058
     Dates: start: 20030615, end: 20040115
  2. METHOTREXATE [Suspect]
     Indication: POLYARTHRITIS
     Dosage: 10 MG (UNSPECIFIED INTERVAL)
     Route: 048
     Dates: start: 20010315, end: 20010615
  3. REMICADE [Suspect]
     Indication: POLYARTHRITIS
     Dosage: 0.3 G EVERY 1 CYC
     Route: 042
     Dates: start: 20011015, end: 20030515
  4. ARAVA [Suspect]
     Indication: POLYARTHRITIS
     Route: 048
     Dates: start: 20010715, end: 20030515

REACTIONS (3)
  - BETA 2 MICROGLOBULIN INCREASED [None]
  - BLOOD LACTATE DEHYDROGENASE INCREASED [None]
  - T-CELL LYMPHOMA STAGE IV [None]
